FAERS Safety Report 8482834 (Version 6)
Quarter: 2012Q4

REPORT INFORMATION
  Report Type: 
  Country: US (occurrence: US)
  Receive Date: 20120329
  Receipt Date: 20121102
  Transmission Date: 20130627
  Serious: Yes (Hospitalization, Disabling, Other)
  Sender: FDA-Public Use
  Company Number: US-MERCK-1203USA03483

PATIENT

DRUGS (6)
  1. FOSAMAX [Suspect]
     Indication: OSTEOPOROSIS
     Dosage: 10 mg, qd
     Route: 048
     Dates: start: 19991010, end: 20010223
  2. FOSAMAX [Suspect]
     Dosage: 70 mg, QW
     Route: 048
     Dates: start: 20010224
  3. FOSAMAX [Suspect]
     Dosage: 70 mg, QW
     Route: 048
     Dates: start: 20070319
  4. FOSAMAX PLUS D [Suspect]
     Indication: OSTEOPOROSIS
     Dosage: 70-2800
     Route: 048
     Dates: start: 20010224, end: 20030514
  5. FOSAMAX PLUS D [Suspect]
     Dosage: 70-2800
     Route: 048
     Dates: start: 20061219, end: 20070110
  6. FOSAMAX [Suspect]
     Dosage: 70 mg, QW
     Route: 048
     Dates: start: 20081119, end: 20110305

REACTIONS (25)
  - Hip fracture [Not Recovered/Not Resolved]
  - Osteoporosis [Not Recovered/Not Resolved]
  - Stress fracture [Not Recovered/Not Resolved]
  - Post procedural haemorrhage [Unknown]
  - Ovarian cyst [Unknown]
  - Dyspnoea [Unknown]
  - Bronchospasm [Unknown]
  - Bronchitis [Unknown]
  - Presyncope [Unknown]
  - Femur fracture [Not Recovered/Not Resolved]
  - Pelvic floor muscle weakness [Unknown]
  - Enteritis [Unknown]
  - Intramedullary rod insertion [Unknown]
  - Low turnover osteopathy [Not Recovered/Not Resolved]
  - Femur fracture [Unknown]
  - General symptom [Unknown]
  - Essential hypertension [Unknown]
  - Hypertonic bladder [Unknown]
  - Osteoarthritis [Unknown]
  - Arrhythmia [Unknown]
  - Anxiety [Unknown]
  - Lymphangitis [Unknown]
  - Hypercholesterolaemia [Unknown]
  - Gastroenteritis [Unknown]
  - Gastrooesophageal reflux disease [Unknown]
